FAERS Safety Report 21731654 (Version 2)
Quarter: 2023Q1

REPORT INFORMATION
  Report Type: Spontaneous
  Country: IT (occurrence: IT)
  Receive Date: 20221215
  Receipt Date: 20230208
  Transmission Date: 20230418
  Serious: Yes (Other)
  Sender: FDA-Public Use
  Company Number: IT-SUN PHARMACEUTICAL INDUSTRIES LTD-2022RR-368700

PATIENT
  Age: 73 Year
  Sex: Female

DRUGS (4)
  1. OXALIPLATIN [Suspect]
     Active Substance: OXALIPLATIN
     Indication: Colon cancer
     Dosage: 130 MILLIGRAM/SQ. METER, DAILY
     Route: 042
  2. OXALIPLATIN [Suspect]
     Active Substance: OXALIPLATIN
     Dosage: 100 MILLIGRAM/SQ. METER, DAILY
     Route: 042
  3. CAPECITABINE [Suspect]
     Active Substance: CAPECITABINE
     Indication: Colon cancer
     Dosage: 1000 MILLIGRAM, BID
     Route: 048
  4. CAPECITABINE [Suspect]
     Active Substance: CAPECITABINE
     Dosage: 625 MILLIGRAM/SQ. METER, BID
     Route: 048

REACTIONS (5)
  - Diarrhoea [Unknown]
  - Palmar-plantar erythrodysaesthesia syndrome [Unknown]
  - Nausea [Unknown]
  - Paraesthesia [Unknown]
  - Conjunctivitis [Unknown]
